FAERS Safety Report 6962964-1 (Version None)
Quarter: 2010Q3

REPORT INFORMATION
  Report Type: 
  Country: None (occurrence: None)
  Receive Date: 20100831
  Receipt Date: 20100823
  Transmission Date: 20110219
  Serious: Yes (Other)
  Sender: FDA-Public Use
  Company Number: 2010SP032259

PATIENT
  Age: 31 Year
  Sex: Female

DRUGS (3)
  1. SAPHRIS [Suspect]
     Indication: BIPOLAR DISORDER
     Dosage: 5 MG; BID; SL
     Route: 060
     Dates: start: 20100521, end: 20100523
  2. SAPHRIS [Suspect]
     Indication: MANIA
     Dosage: 5 MG; BID; SL
     Route: 060
     Dates: start: 20100521, end: 20100523
  3. CYMBALTA [Concomitant]

REACTIONS (5)
  - AGITATION [None]
  - DYSPHONIA [None]
  - DYSTONIA [None]
  - TACHYCARDIA [None]
  - THROAT TIGHTNESS [None]
